FAERS Safety Report 25584199 (Version 1)
Quarter: 2025Q3

REPORT INFORMATION
  Report Type: Spontaneous
  Country: ZA (occurrence: ZA)
  Receive Date: 20250721
  Receipt Date: 20250721
  Transmission Date: 20251020
  Serious: Yes (Life-Threatening, Other)
  Sender: EMD SERONO INC
  Company Number: ZA-Merck Healthcare KGaA-2025035658

PATIENT
  Age: 57 Year
  Sex: Female

DRUGS (1)
  1. EUTHYROX [Suspect]
     Active Substance: LEVOTHYROXINE SODIUM
     Indication: Thyroid hormone replacement therapy

REACTIONS (2)
  - Anaphylactic shock [Not Recovered/Not Resolved]
  - Type IV hypersensitivity reaction [Not Recovered/Not Resolved]

NARRATIVE: CASE EVENT DATE: 20241101
